FAERS Safety Report 6561806-6 (Version None)
Quarter: 2010Q1

REPORT INFORMATION
  Report Type: 
  Country: None (occurrence: None)
  Receive Date: 20100130
  Receipt Date: 20091026
  Transmission Date: 20100710
  Serious: No
  Sender: FDA-Public Use
  Company Number: US-ABBOTT-09P-163-0606989-00

PATIENT
  Sex: Female
  Weight: 87.168 kg

DRUGS (11)
  1. HUMIRA [Suspect]
     Indication: PSORIATIC ARTHROPATHY
     Dates: start: 20091102
  2. HUMIRA [Suspect]
     Dates: end: 20091001
  3. SOTALOL [Concomitant]
     Indication: ARRHYTHMIA
  4. DIGITAC [Concomitant]
     Indication: ARRHYTHMIA
  5. FOLIC ACID [Concomitant]
     Indication: DRUG USE FOR UNKNOWN INDICATION
  6. LEVOTHYROXINE SODIUM [Concomitant]
     Indication: THYROIDECTOMY
  7. SIMVASTATIN [Concomitant]
     Indication: BLOOD CHOLESTEROL INCREASED
  8. METFORMIN [Concomitant]
     Indication: DIABETES MELLITUS
  9. EFFEXOR XR [Concomitant]
     Indication: DEPRESSION
  10. CELEBREX [Concomitant]
     Indication: PSORIATIC ARTHROPATHY
  11. VITAMIN E [Concomitant]
     Indication: DRUG USE FOR UNKNOWN INDICATION

REACTIONS (1)
  - NASOPHARYNGITIS [None]
